FAERS Safety Report 7807999-1 (Version None)
Quarter: 2011Q4

REPORT INFORMATION
  Report Type: 
  Country: None (occurrence: None)
  Receive Date: 20111011
  Receipt Date: 20111011
  Transmission Date: 20120403
  Serious: No
  Sender: FDA-Public Use
  Company Number: None

PATIENT
  Age: 52 Year
  Sex: Female

DRUGS (1)
  1. LOVAZA [Suspect]
     Indication: HYPERTRIGLYCERIDAEMIA
     Dosage: 2-4 GRAMS
     Route: 048
     Dates: start: 20110830, end: 20111010

REACTIONS (1)
  - HEADACHE [None]
